FAERS Safety Report 12901498 (Version 1)
Quarter: 2016Q4

REPORT INFORMATION
  Report Type: Spontaneous
  Country: US (occurrence: US)
  Receive Date: 20161102
  Receipt Date: 20161102
  Transmission Date: 20170207
  Serious: No
  Sender: FDA-Public Use
  Company Number: US-TAIHO ONCOLOGY INC-EU-2016-02840

PATIENT
  Sex: Female

DRUGS (11)
  1. EFFEXOR XR [Concomitant]
     Active Substance: VENLAFAXINE HYDROCHLORIDE
     Dates: start: 201609
  2. PAXIL [Concomitant]
     Active Substance: PAROXETINE HYDROCHLORIDE
     Dates: start: 201609
  3. PREVACID [Concomitant]
     Active Substance: LANSOPRAZOLE
     Dates: start: 201609
  4. LOMOTIL [Concomitant]
     Active Substance: ATROPINE SULFATE\DIPHENOXYLATE HYDROCHLORIDE
     Dates: start: 201609
  5. ORAMAGIC PLS [Concomitant]
     Dates: start: 201609
  6. CLARINEX [Concomitant]
     Active Substance: DESLORATADINE
     Dates: start: 201609
  7. PREDNISONE. [Concomitant]
     Active Substance: PREDNISONE
     Dates: start: 201609
  8. TYLENOL [Concomitant]
     Active Substance: ACETAMINOPHEN
     Dates: start: 201609
  9. POTASSIUM [Concomitant]
     Active Substance: POTASSIUM
     Dates: start: 201609
  10. LONSURF [Suspect]
     Active Substance: TIPIRACIL HYDROCHLORIDE\TRIFLURIDINE
     Indication: COLON CANCER
     Route: 048
     Dates: start: 201609
  11. PHENERGAN [Concomitant]
     Active Substance: PROMETHAZINE HYDROCHLORIDE
     Dates: start: 201609

REACTIONS (3)
  - Nausea [Not Recovered/Not Resolved]
  - Fatigue [Not Recovered/Not Resolved]
  - Cough [Not Recovered/Not Resolved]

NARRATIVE: CASE EVENT DATE: 2016
